FAERS Safety Report 10389022 (Version 1)
Quarter: 2014Q1

REPORT INFORMATION
  Report Type: Spontaneous
  Country: US (occurrence: None)
  Receive Date: 20140306
  Receipt Date: 20140306
  Transmission Date: 20141002
  Serious: Yes (Hospitalization, Other)
  Sender: FDA-Public Use
  Company Number: 163-21880-13102912

PATIENT
  Age: 84 Year
  Sex: Female
  Weight: 63.05 kg

DRUGS (1)
  1. REVLIMID [Suspect]
     Indication: PLASMA CELL MYELOMA
     Route: 048
     Dates: start: 201211

REACTIONS (6)
  - Myocardial infarction [None]
  - Dehydration [None]
  - Lung infection [None]
  - Kidney infection [None]
  - Syncope [None]
  - Anaemia [None]
